FAERS Safety Report 25197046 (Version 1)
Quarter: 2025Q2

REPORT INFORMATION
  Report Type: Spontaneous
  Country: US (occurrence: US)
  Receive Date: 20250415
  Receipt Date: 20250415
  Transmission Date: 20250716
  Serious: Yes (Other)
  Sender: ZYDUS PHARM
  Company Number: US-CADILA HEALTHCARE LIMITED-US-ZYDUS-121815

PATIENT

DRUGS (3)
  1. DROXIDOPA [Suspect]
     Active Substance: DROXIDOPA
     Indication: Orthostatic hypotension
     Route: 065
  2. MIDODRINE HYDROCHLORIDE [Suspect]
     Active Substance: MIDODRINE HYDROCHLORIDE
     Indication: Orthostatic hypotension
     Route: 065
  3. FLUDROCORTISONE [Suspect]
     Active Substance: FLUDROCORTISONE
     Indication: Orthostatic hypotension
     Route: 065

REACTIONS (3)
  - Arrhythmia [Recovered/Resolved]
  - Cardiomyopathy [Recovered/Resolved]
  - Drug ineffective [Unknown]
